FAERS Safety Report 4785302-1 (Version None)
Quarter: 2005Q3

REPORT INFORMATION
  Report Type: 
  Country: None (occurrence: None)
  Receive Date: 20050914
  Receipt Date: 20040901
  Transmission Date: 20060218
  Serious: Yes (Hospitalization)
  Sender: FDA-Public Use
  Company Number: 163-20785-04070455

PATIENT
  Age: 66 Year
  Sex: Male

DRUGS (1)
  1. THALOMID [Suspect]
     Indication: MULTIPLE MYELOMA
     Dosage: 200 MG, DAILY, ORAL
     Route: 048
     Dates: start: 20040408

REACTIONS (8)
  - BRONCHITIS [None]
  - COUGH [None]
  - DISEASE PROGRESSION [None]
  - HYPERSENSITIVITY [None]
  - HYPERTENSION [None]
  - NEUROPATHY PERIPHERAL [None]
  - PYREXIA [None]
  - RESPIRATORY TRACT CONGESTION [None]
